FAERS Safety Report 8942035 (Version 2)
Quarter: 2012Q4

REPORT INFORMATION
  Report Type: 
  Country: JP (occurrence: JP)
  Receive Date: 20121130
  Receipt Date: 20121212
  Transmission Date: 20130627
  Serious: Yes (Disabling)
  Sender: FDA-Public Use
  Company Number: JP-ABBOTT-12P-087-1012329-00

PATIENT
  Age: 35 Year
  Sex: Male

DRUGS (3)
  1. NORVIR [Suspect]
     Indication: PRODUCT USED FOR UNKNOWN INDICATION
     Dates: start: 20061227
  2. REYATAZ [Suspect]
     Indication: HIV INFECTION
     Dates: start: 20061227
  3. TRUVADA [Suspect]
     Indication: HIV INFECTION
     Dates: start: 20061227

REACTIONS (2)
  - Progressive multifocal leukoencephalopathy [Unknown]
  - Hemianopia homonymous [Unknown]
